FAERS Safety Report 9228313 (Version 2)
Quarter: 2013Q2

REPORT INFORMATION
  Report Type: Spontaneous
  Country: FI (occurrence: FI)
  Receive Date: 20130412
  Receipt Date: 20130615
  Transmission Date: 20140414
  Serious: Yes (Death, Hospitalization)
  Sender: FDA-Public Use
  Company Number: FI-ROCHE-1213917

PATIENT
  Age: 68 Year
  Sex: Male

DRUGS (6)
  1. ACTILYSE [Suspect]
     Indication: BASILAR ARTERY OCCLUSION
     Dosage: 10% AS BOLUS, 90% AS AN INFUSION OVER 1 HOUR
     Route: 065
  2. HEPARIN [Suspect]
     Indication: BASILAR ARTERY OCCLUSION
     Route: 065
  3. PROPOFOL [Concomitant]
  4. FENTANYL [Concomitant]
  5. SOTALOL [Concomitant]
     Indication: HYPERTENSION
     Route: 065
  6. DILTIAZEM [Concomitant]
     Indication: HYPERTENSION
     Route: 065

REACTIONS (4)
  - Pulmonary oedema [Fatal]
  - Lower respiratory tract infection [Unknown]
  - Atrial fibrillation [Unknown]
  - Locked-in syndrome [Recovered/Resolved]
